FAERS Safety Report 7865273-1 (Version None)
Quarter: 2011Q4

REPORT INFORMATION
  Report Type: 
  Country: None (occurrence: None)
  Receive Date: 20111028
  Receipt Date: 20101115
  Transmission Date: 20120403
  Serious: Yes (Other)
  Sender: FDA-Public Use
  Company Number: US-GLAXOSMITHKLINE-A0892538A

PATIENT
  Age: 56 Year
  Sex: Female

DRUGS (13)
  1. CARVEDILOL [Concomitant]
  2. MULTI-VITAMIN [Concomitant]
  3. ASCORBIC ACID [Concomitant]
  4. XANAX [Concomitant]
  5. PLAVIX [Concomitant]
  6. RANITIDINE [Concomitant]
  7. ACTOS [Concomitant]
  8. FISH OIL [Concomitant]
  9. DIGOXIN [Concomitant]
  10. CRESTOR [Concomitant]
  11. VICODIN [Concomitant]
  12. ADVAIR DISKUS 100/50 [Suspect]
     Indication: ASTHMA
     Dosage: 1PUFF TWICE PER DAY
     Route: 055
     Dates: start: 20070101
  13. VITAMIN D [Concomitant]

REACTIONS (1)
  - DYSPNOEA [None]
